FAERS Safety Report 9361910 (Version 1)
Quarter: 2013Q2

REPORT INFORMATION
  Report Type: Report from Study
  Country: DE (occurrence: DE)
  Receive Date: 20130621
  Receipt Date: 20130621
  Transmission Date: 20140414
  Serious: Yes (Hospitalization)
  Sender: FDA-Public Use
  Company Number: DE-ABBOTT-13P-062-1103858-00

PATIENT
  Age: 81 Year
  Sex: Female
  Weight: 68 kg

DRUGS (7)
  1. HUMIRA [Suspect]
     Indication: RHEUMATOID ARTHRITIS
     Route: 058
     Dates: start: 20080627
  2. METHOTREXATE [Concomitant]
     Indication: RHEUMATOID ARTHRITIS
     Route: 048
     Dates: start: 20080627
  3. FOLIC ACID [Concomitant]
     Indication: RHEUMATOID ARTHRITIS
     Route: 048
     Dates: start: 20080627
  4. GLIMEPIRIDE [Concomitant]
     Indication: DIABETES MELLITUS
     Route: 048
     Dates: start: 20040706
  5. METFORMIN [Concomitant]
     Indication: DIABETES MELLITUS
     Route: 048
     Dates: start: 20040706
  6. PHENPROCOUMON [Concomitant]
     Indication: CORONARY ARTERY DISEASE
     Dosage: DEPENDENT ON INR
     Route: 048
     Dates: start: 20130510
  7. TELMISARTAN/HCT [Concomitant]
     Indication: HYPERTENSION
     Dosage: 80/12.5 MG DAILY
     Route: 048
     Dates: start: 20080627

REACTIONS (3)
  - Bradyarrhythmia [Recovered/Resolved]
  - Unevaluable event [Recovered/Resolved]
  - Atrial fibrillation [Recovered/Resolved]
